FAERS Safety Report 14964642 (Version 1)
Quarter: 2018Q2

REPORT INFORMATION
  Report Type: Spontaneous
  Country: US (occurrence: US)
  Receive Date: 20180601
  Receipt Date: 20180601
  Transmission Date: 20180711
  Serious: No
  Sender: FDA-Public Use
  Company Number: PHEH2018US020527

PATIENT
  Sex: Female

DRUGS (2)
  1. KISQALI FEMARA CO-PACK [Suspect]
     Active Substance: LETROZOLE\RIBOCICLIB
     Indication: BREAST CANCER METASTATIC
     Dosage: 600 MG, (1X PER DAY FOR 21 DAYS ON, 7 DAYS OFF CYCLE)
     Route: 048
     Dates: start: 20180301, end: 20180508
  2. KISQALI FEMARA CO-PACK [Suspect]
     Active Substance: LETROZOLE\RIBOCICLIB
     Dosage: 400 MG, (1X PER DAY FOR 21 DAYS ON, 7 DAYS OFF CYCLE)
     Route: 048

REACTIONS (2)
  - Abdominal pain [Not Recovered/Not Resolved]
  - Bone pain [Not Recovered/Not Resolved]

NARRATIVE: CASE EVENT DATE: 20180501
